FAERS Safety Report 21249057 (Version 3)
Quarter: 2022Q3

REPORT INFORMATION
  Report Type: Spontaneous
  Country: US (occurrence: US)
  Receive Date: 20220824
  Receipt Date: 20220922
  Transmission Date: 20221027
  Serious: No
  Sender: FDA-Public Use
  Company Number: US-BIOGEN-2022BI01150253

PATIENT
  Sex: Female

DRUGS (1)
  1. TYSABRI [Suspect]
     Active Substance: NATALIZUMAB
     Indication: Multiple sclerosis
     Dosage: 300 MILLIGRAM/MILLILITER, INFUSED FOR OVER 1 HOUR
     Route: 050
     Dates: start: 20130102, end: 20220829

REACTIONS (1)
  - Hepatic enzyme increased [Not Recovered/Not Resolved]
